FAERS Safety Report 10222372 (Version 2)
Quarter: 2014Q2

REPORT INFORMATION
  Report Type: Report from Study
  Country: US (occurrence: US)
  Receive Date: 20140606
  Receipt Date: 20140613
  Transmission Date: 20141212
  Serious: Yes (Hospitalization)
  Sender: FDA-Public Use
  Company Number: US-JNJFOC-20140604410

PATIENT
  Age: 61 Year
  Sex: Male
  Weight: 63 kg

DRUGS (7)
  1. IMBRUVICA [Suspect]
     Indication: MANTLE CELL LYMPHOMA
     Route: 048
     Dates: start: 201403, end: 20140402
  2. NEURONTIN [Concomitant]
  3. BACTRIM [Concomitant]
  4. ACYCLOVIR [Concomitant]
  5. DILAUDID [Concomitant]
  6. DECADRON [Concomitant]
  7. PRILOSEC [Concomitant]

REACTIONS (8)
  - Chest pain [Unknown]
  - Staphylococcal sepsis [Recovered/Resolved]
  - Mental status changes [Unknown]
  - Hyponatraemia [Recovered/Resolved]
  - Hypokalaemia [Recovered/Resolved]
  - Disease progression [Not Recovered/Not Resolved]
  - Dehydration [Recovered/Resolved]
  - Pneumonia [Recovered/Resolved]
